FAERS Safety Report 8603220-5 (Version None)
Quarter: 2012Q3

REPORT INFORMATION
  Report Type: 
  Country: None (occurrence: None)
  Receive Date: 20120817
  Receipt Date: 20120815
  Transmission Date: 20120928
  Serious: Yes (Death)
  Sender: FDA-Public Use
  Company Number: BR-ELI_LILLY_AND_COMPANY-BR201208004820

PATIENT
  Sex: Male

DRUGS (1)
  1. HUMALOG [Suspect]
     Dosage: UNK, UNKNOWN
     Route: 065

REACTIONS (1)
  - DEATH [None]
